FAERS Safety Report 7609059-1 (Version None)
Quarter: 2011Q3

REPORT INFORMATION
  Report Type: 
  Country: None (occurrence: None)
  Receive Date: 20110714
  Receipt Date: 20110708
  Transmission Date: 20111222
  Serious: Yes (Other)
  Sender: FDA-Public Use
  Company Number: GB-CELGENEUS-167-21880-11070872

PATIENT
  Sex: Male

DRUGS (3)
  1. ELOTUZUMAB [Suspect]
     Indication: MULTIPLE MYELOMA
     Route: 051
     Dates: end: 20110622
  2. DEXAMETHASONE [Suspect]
     Indication: MULTIPLE MYELOMA
     Dosage: 8 MILLIGRAM
     Route: 051
     Dates: end: 20110622
  3. REVLIMID [Suspect]
     Indication: MULTIPLE MYELOMA
     Dosage: 5 MILLIGRAM
     Route: 048
     Dates: end: 20110622

REACTIONS (1)
  - MYELODYSPLASTIC SYNDROME [None]
